FAERS Safety Report 25671250 (Version 1)
Quarter: 2025Q3

REPORT INFORMATION
  Report Type: Spontaneous
  Country: US (occurrence: None)
  Receive Date: 20250812
  Receipt Date: 20250812
  Transmission Date: 20251021
  Serious: No
  Sender: FDA-CTU
  Company Number: None

PATIENT
  Age: 67 Year
  Sex: Male

DRUGS (2)
  1. PRALUENT [Suspect]
     Active Substance: ALIROCUMAB
     Dosage: FREQUENCY : EVERY OTHER WEEK;?
  2. REPATHA [Suspect]
     Active Substance: EVOLOCUMAB

REACTIONS (6)
  - Myalgia [None]
  - Arthralgia [None]
  - Injection site pain [None]
  - Pain in extremity [None]
  - Arthralgia [None]
  - Therapy change [None]
